FAERS Safety Report 8912709 (Version 1)
Quarter: 2012Q4

REPORT INFORMATION
  Report Type: Report from Study
  Country: RO (occurrence: RO)
  Receive Date: 20121116
  Receipt Date: 20121116
  Transmission Date: 20130627
  Serious: Yes (Hospitalization)
  Sender: FDA-Public Use
  Company Number: RO-UCBSA-070813

PATIENT
  Age: 77 Year
  Sex: Male
  Weight: 81 kg

DRUGS (9)
  1. NEUPRO [Suspect]
     Indication: PARKINSON^S DISEASE
     Route: 062
     Dates: start: 20110305, end: 201211
  2. NEUPRO [Suspect]
     Indication: PARKINSON^S DISEASE
     Route: 062
     Dates: start: 20101224, end: 20110304
  3. NEUPRO [Suspect]
     Indication: PARKINSON^S DISEASE
     Route: 062
     Dates: start: 20101217, end: 20101223
  4. NEUPRO [Suspect]
     Indication: PARKINSON^S DISEASE
     Route: 062
     Dates: start: 20101210, end: 20101216
  5. NEUPRO [Suspect]
     Indication: PARKINSON^S DISEASE
     Route: 062
     Dates: start: 20101203, end: 20101209
  6. MADOPAR [Concomitant]
     Indication: PARKINSON^S DISEASE
     Dates: start: 2003, end: 201011
  7. MADOPAR [Concomitant]
     Indication: PARKINSON^S DISEASE
     Dosage: 100/25 MG
     Dates: start: 201011, end: 201211
  8. VIREGYT [Concomitant]
     Indication: PARKINSON^S DISEASE
     Dates: start: 2003
  9. BILOBIL [Concomitant]
     Indication: DIZZINESS
     Dates: start: 20110806

REACTIONS (1)
  - Gastrointestinal haemorrhage [Recovering/Resolving]
